FAERS Safety Report 6710599-8 (Version None)
Quarter: 2010Q2

REPORT INFORMATION
  Report Type: 
  Country: None (occurrence: None)
  Receive Date: 20100430
  Receipt Date: 20100419
  Transmission Date: 20101027
  Serious: Yes (Death, Other)
  Sender: FDA-Public Use
  Company Number: MC201000110

PATIENT

DRUGS (3)
  1. ANGIOMAX [Suspect]
     Indication: PERCUTANEOUS CORONARY INTERVENTION
  2. CLOPIDOGREL [Suspect]
     Indication: PERCUTANEOUS CORONARY INTERVENTION
     Dosage: 300 OR 600 MG LOADING DOSE ; 75 MG, QD MAINTENANCE DOSE FOR AT LEAST 12 MONTHS
  3. ASPIRIN [Suspect]
     Indication: ANTIPLATELET THERAPY

REACTIONS (11)
  - ACUTE MYOCARDIAL INFARCTION [None]
  - AORTIC THROMBOSIS [None]
  - ARM AMPUTATION [None]
  - CARDIAC DEATH [None]
  - CORONARY REVASCULARISATION [None]
  - HAEMATOMA [None]
  - HAEMORRHAGE [None]
  - HEPARIN-INDUCED THROMBOCYTOPENIA [None]
  - INFECTION [None]
  - LOW CARDIAC OUTPUT SYNDROME [None]
  - VASCULAR PSEUDOANEURYSM [None]
